FAERS Safety Report 7983201-5 (Version None)
Quarter: 2011Q4

REPORT INFORMATION
  Report Type: 
  Country: None (occurrence: None)
  Receive Date: 20111215
  Receipt Date: 20111209
  Transmission Date: 20120403
  Serious: Yes (Death, Other)
  Sender: FDA-Public Use
  Company Number: US-ACTELION-A-NJ2011-57423

PATIENT

DRUGS (1)
  1. TRACLEER [Suspect]
     Indication: PULMONARY ARTERIAL HYPERTENSION
     Dosage: UNK
     Route: 048
     Dates: start: 20061115, end: 20111011

REACTIONS (3)
  - RIGHT VENTRICULAR FAILURE [None]
  - SMALL INTESTINAL OBSTRUCTION [None]
  - CONDITION AGGRAVATED [None]
